FAERS Safety Report 10722065 (Version 1)
Quarter: 2015Q1

REPORT INFORMATION
  Report Type: Spontaneous
  Country: US (occurrence: US)
  Receive Date: 20150120
  Receipt Date: 20150120
  Transmission Date: 20150721
  Serious: No
  Sender: FDA-Public Use
  Company Number: US-TEVA-511684USA

PATIENT
  Sex: Male

DRUGS (1)
  1. DEXTROAMPHETAMINE SULFATE. [Suspect]
     Active Substance: DEXTROAMPHETAMINE SULFATE
     Dosage: 40 MILLIGRAM DAILY;
     Route: 065
     Dates: start: 20140903

REACTIONS (6)
  - Somnolence [Unknown]
  - Irritability [Unknown]
  - Drug ineffective [Unknown]
  - Feeling jittery [Unknown]
  - Disturbance in attention [Unknown]
  - Therapeutic response decreased [Unknown]
